FAERS Safety Report 20163983 (Version 2)
Quarter: 2022Q1

REPORT INFORMATION
  Report Type: Spontaneous
  Country: ES (occurrence: ES)
  Receive Date: 20211209
  Receipt Date: 20220207
  Transmission Date: 20220423
  Serious: Yes (Other)
  Sender: FDA-Public Use
  Company Number: ES-AMGEN-ESPSP2021181092

PATIENT
  Age: 63 Year
  Sex: Male

DRUGS (1)
  1. CINACALCET [Suspect]
     Active Substance: CINACALCET
     Indication: Hypercalcaemia
     Dosage: UNK
     Route: 065

REACTIONS (3)
  - Parathyroid tumour benign [Unknown]
  - High turnover osteopathy [Unknown]
  - Drug ineffective [Unknown]
